FAERS Safety Report 7272867-3 (Version None)
Quarter: 2011Q1

REPORT INFORMATION
  Report Type: 
  Country: None (occurrence: None)
  Receive Date: 20110128
  Receipt Date: 20110119
  Transmission Date: 20110831
  Serious: Yes (Death, Hospitalization, Other)
  Sender: FDA-Public Use
  Company Number: ES-ACCORD-007940

PATIENT
  Age: 19 Year
  Sex: Female
  Weight: 75 kg

DRUGS (3)
  1. QUETIAPINE FUMARATE [Suspect]
  2. VENLAFAXINE [Suspect]
  3. TOPIRAMATE [Suspect]

REACTIONS (16)
  - METABOLIC ACIDOSIS [None]
  - RHABDOMYOLYSIS [None]
  - ASPIRATION [None]
  - MULTIPLE DRUG OVERDOSE [None]
  - SINUS TACHYCARDIA [None]
  - NOSOCOMIAL INFECTION [None]
  - RESPIRATORY FAILURE [None]
  - SOMNOLENCE [None]
  - BLOOD GLUCOSE INCREASED [None]
  - HYPOXIC-ISCHAEMIC ENCEPHALOPATHY [None]
  - CARDIAC FAILURE [None]
  - BLOOD PRESSURE SYSTOLIC DECREASED [None]
  - DRUG LEVEL INCREASED [None]
  - BLOOD POTASSIUM DECREASED [None]
  - BRAIN OEDEMA [None]
  - GRAND MAL CONVULSION [None]
